FAERS Safety Report 8166636-X (Version None)
Quarter: 2012Q1

REPORT INFORMATION
  Report Type: 
  Country: None (occurrence: None)
  Receive Date: 20120221
  Receipt Date: 20120210
  Transmission Date: 20120608
  Serious: Yes (Other)
  Sender: FDA-Public Use
  Company Number: TUK2012A00037

PATIENT
  Age: 70 Year
  Sex: Male

DRUGS (9)
  1. PIOGLITAZONE [Suspect]
     Indication: PRODUCT USED FOR UNKNOWN INDICATION
     Dosage: (30 MG)
     Route: 048
     Dates: start: 20091214, end: 20120201
  2. LOSARTAN POTASSIUM [Concomitant]
  3. METFORMIN HCL [Concomitant]
  4. GLIBENCLAIMDE (GLIBENCLAMIDE) [Concomitant]
  5. OMEPRAZOLE [Concomitant]
  6. ACETAMINOPHEN [Concomitant]
  7. ASPIRIN [Concomitant]
  8. BISPOPROLOL (BISOPROLOL) [Concomitant]
  9. PRAVASTATIN [Concomitant]

REACTIONS (1)
  - BLADDER TRANSITIONAL CELL CARCINOMA [None]
